FAERS Safety Report 4676049-0 (Version None)
Quarter: 2005Q2

REPORT INFORMATION
  Report Type: 
  Country: None (occurrence: None)
  Receive Date: 20050527
  Receipt Date: 20050318
  Transmission Date: 20051028
  Serious: No
  Sender: FDA-Public Use
  Company Number: US-GLAXOSMITHKLINE-A0550443A

PATIENT
  Age: 47 Year
  Sex: Female

DRUGS (5)
  1. WELLBUTRIN XL [Suspect]
     Indication: DEPRESSION
     Dosage: 150MG PER DAY
     Route: 048
     Dates: start: 20030101
  2. PROZAC [Concomitant]
  3. LASIX [Concomitant]
  4. TENORMIN [Concomitant]
  5. DIOVAN [Concomitant]

REACTIONS (1)
  - FATIGUE [None]
